FAERS Safety Report 8534857-X (Version None)
Quarter: 2012Q3

REPORT INFORMATION
  Report Type: 
  Country: None (occurrence: None)
  Receive Date: 20120724
  Receipt Date: 20120120
  Transmission Date: 20120928
  Serious: Yes (Other)
  Sender: FDA-Public Use
  Company Number: CHPA2012US012662

PATIENT
  Age: 44 Year
  Sex: Female

DRUGS (1)
  1. EXCEDRIN (MIGRAINE) [Suspect]
     Indication: HEADACHE
     Dosage: 2-3 A DAY
     Route: 048
     Dates: start: 20070101

REACTIONS (7)
  - OVERDOSE [None]
  - OEDEMA PERIPHERAL [None]
  - DEHYDRATION [None]
  - ABDOMINAL PAIN UPPER [None]
  - BREAST CANCER [None]
  - MALAISE [None]
  - LYMPHOEDEMA [None]
